FAERS Safety Report 17467390 (Version 4)
Quarter: 2021Q3

REPORT INFORMATION
  Report Type: Spontaneous
  Country: US (occurrence: US)
  Receive Date: 20200227
  Receipt Date: 20210811
  Transmission Date: 20211014
  Serious: Yes (Other)
  Sender: FDA-Public Use
  Company Number: US-PFIZER INC-2020086838

PATIENT
  Age: 78 Year
  Sex: Female

DRUGS (2)
  1. VITAMIN D [VITAMIN D NOS] [Suspect]
     Active Substance: VITAMIN D NOS
     Indication: CORONAVIRUS INFECTION
     Dosage: UNK
  2. PREMPRO [Suspect]
     Active Substance: ESTROGENS, CONJUGATED\MEDROXYPROGESTERONE ACETATE
     Indication: OSTEITIS DEFORMANS
     Dosage: UNK

REACTIONS (11)
  - Influenza [Unknown]
  - Osteitis deformans [Unknown]
  - Pyrexia [Unknown]
  - Gait inability [Unknown]
  - Pain in extremity [Recovered/Resolved]
  - Cough [Unknown]
  - Hypersensitivity [Unknown]
  - Illness [Unknown]
  - Off label use [Unknown]
  - Hypoacusis [Unknown]
  - Gait disturbance [Unknown]
